FAERS Safety Report 9442170 (Version 2)
Quarter: 2013Q3

REPORT INFORMATION
  Report Type: Report from Study
  Country: DE (occurrence: DE)
  Receive Date: 20130806
  Receipt Date: 20130821
  Transmission Date: 20140515
  Serious: No
  Sender: FDA-Public Use
  Company Number: DE-AMGEN-DEUNI2013047969

PATIENT
  Age: 64 Year
  Sex: Female

DRUGS (4)
  1. PANITUMUMAB [Suspect]
     Indication: COLORECTAL CANCER METASTATIC
     Dosage: 470 MG, Q2WK
     Route: 042
     Dates: start: 20130502
  2. FOLIC ACID [Concomitant]
     Dosage: 370 MG, UNK
     Route: 042
     Dates: start: 20130502
  3. 5-FU [Concomitant]
     Dosage: UNK
     Route: 042
     Dates: start: 20130502
  4. OXALIPLATIN [Concomitant]
     Dosage: 160 MG, UNK
     Route: 042
     Dates: start: 20130502

REACTIONS (3)
  - Lip swelling [Recovered/Resolved]
  - Skin reaction [Not Recovered/Not Resolved]
  - Mucosal inflammation [Recovered/Resolved]
